FAERS Safety Report 22156825 (Version 1)
Quarter: 2023Q1

REPORT INFORMATION
  Report Type: Spontaneous
  Country: GB (occurrence: GB)
  Receive Date: 20230330
  Receipt Date: 20230330
  Transmission Date: 20230418
  Serious: Yes (Hospitalization, Other)
  Sender: FDA-Public Use
  Company Number: GB-MHRA-MIDB-c9dd96cc-39ca-4fca-82a3-e01cbd1dc4e7

PATIENT
  Age: 70 Year
  Sex: Male

DRUGS (15)
  1. BEVACIZUMAB [Suspect]
     Active Substance: BEVACIZUMAB
     Dosage: UNK
  2. ATEZOLIZUMAB [Suspect]
     Active Substance: ATEZOLIZUMAB
     Dosage: UNK
  3. APIXABAN [Concomitant]
     Active Substance: APIXABAN
     Dosage: 5 MG, 2X/DAY
     Route: 048
     Dates: end: 20220904
  4. CYCLIZINE [Concomitant]
     Active Substance: CYCLIZINE
     Dosage: 50 MG, AS NEEDED
     Route: 048
  5. DOCUSATE [Concomitant]
     Active Substance: DOCUSATE
     Dosage: 1 DF, 2X/DAY
     Route: 048
  6. MISOPROSTOL [Concomitant]
     Active Substance: MISOPROSTOL
     Dosage: UNK
  7. NAPROXEN [Concomitant]
     Active Substance: NAPROXEN
     Dosage: 1 DF, 2X/DAY
     Route: 048
  8. OMEPRAZOLE [Concomitant]
     Active Substance: OMEPRAZOLE
     Dosage: 20 MG, 2X/DAY
     Route: 048
  9. ACETAMINOPHEN [Concomitant]
     Active Substance: ACETAMINOPHEN
     Dosage: 1 OR 2, FOUR TIMES A DAY
     Route: 048
  10. ALBUTEROL SULFATE [Concomitant]
     Active Substance: ALBUTEROL SULFATE
     Dosage: ONE OR TWO PUFFS 4 TIMES A DAY
     Route: 055
  11. PROCHLORPERAZINE MALEATE [Concomitant]
     Active Substance: PROCHLORPERAZINE MALEATE
     Dosage: 3 MG, AS NEEDED
     Route: 048
  12. FERROUS FUMARATE [Concomitant]
     Active Substance: FERROUS FUMARATE
     Dosage: REDUCED TO ONCE DAILY
     Route: 048
  13. SENNA LEAF [Concomitant]
     Active Substance: SENNA LEAF
     Dosage: 7.5 MG, 2X/DAY
     Route: 048
  14. ENSURE COMPACT [Concomitant]
     Dosage: 125 ML, 2X/DAY (BANANA,  TWICE A DAY OR WHEN REQUIRED 28 X 125 ML)
     Dates: start: 20220906
  15. ENSURE COMPACT [Concomitant]
     Dosage: 125 ML, 2X/DAY (STRAWBERRY,  TWICE A DAY OR WHEN REQUIRED 28 X 125 ML)
     Dates: start: 20220906

REACTIONS (2)
  - Myocarditis [Recovered/Resolved]
  - Pericarditis [Unknown]
